FAERS Safety Report 12639751 (Version 1)
Quarter: 2016Q3

REPORT INFORMATION
  Report Type: Spontaneous
  Country: US (occurrence: None)
  Receive Date: 20160809
  Receipt Date: 20160809
  Transmission Date: 20161109
  Serious: No
  Sender: FDA-Public Use
  Company Number: None

PATIENT
  Age: 70 Year
  Sex: Male
  Weight: 42.64 kg

DRUGS (1)
  1. NIASPAN [Suspect]
     Active Substance: NIACIN
     Indication: HYPERLIPIDAEMIA
     Route: 048
     Dates: start: 20100429, end: 20101212

REACTIONS (1)
  - Angioedema [None]

NARRATIVE: CASE EVENT DATE: 20101112
